FAERS Safety Report 7979772 (Version 2)
Quarter: 2015Q3

REPORT INFORMATION
  Report Type: Report from Study
  Country: US (occurrence: US)
  Receive Date: 20110608
  Receipt Date: 20150723
  Transmission Date: 20151125
  Serious: Yes (Hospitalization)
  Sender: FDA-Public Use
  Company Number: US-AMGEN-KDL260848

PATIENT
  Age: 64 Year
  Sex: Male

DRUGS (5)
  1. ABICIXIMAB [Concomitant]
     Dosage: 22.2 MUG, UNK
     Route: 040
     Dates: start: 20080110
  2. CLOPIDOGREL BISULFATE. [Concomitant]
     Active Substance: CLOPIDOGREL BISULFATE
     Dosage: 600 MG, UNK
     Dates: start: 20080110, end: 20080110
  3. BLINDED EPOETIN ALFA [Suspect]
     Active Substance: ERYTHROPOIETIN
     Indication: MYOCARDIAL INFARCTION
     Dosage: 60000 IU, UNK
     Route: 042
     Dates: start: 20080110, end: 20080110
  4. NITROPRUSSIDE SODIUM [Concomitant]
     Dosage: 300 MUG, UNK
     Dates: start: 20080110, end: 20080110
  5. PLACEBO [Suspect]
     Active Substance: UNSPECIFIED INGREDIENT
     Indication: MYOCARDIAL INFARCTION
     Dosage: 60000 IU, UNK
     Route: 042
     Dates: start: 20080110, end: 20080110

REACTIONS (4)
  - Thrombosis in device [None]
  - Electrocardiogram ST segment [None]
  - Thrombosis [Recovered/Resolved with Sequelae]
  - Oropharyngeal pain [None]

NARRATIVE: CASE EVENT DATE: 20080110
